FAERS Safety Report 4973229-1 (Version None)
Quarter: 2006Q2

REPORT INFORMATION
  Report Type: 
  Country: None (occurrence: None)
  Receive Date: 20060414
  Receipt Date: 20051123
  Transmission Date: 20061013
  Serious: Yes (Hospitalization)
  Sender: FDA-Public Use
  Company Number: US-MERCK-0511USA04369

PATIENT
  Age: 53 Year
  Sex: Female
  Weight: 135 kg

DRUGS (6)
  1. VIOXX [Suspect]
     Indication: OSTEOARTHRITIS
     Route: 048
     Dates: start: 20010404, end: 20040901
  2. ADVAIR DISKUS 100/50 [Concomitant]
     Route: 065
  3. LISINOPRIL [Concomitant]
     Route: 065
  4. NYSTATIN [Concomitant]
     Route: 065
  5. NYSTATIN AND TRIAMCINOLONE ACETONIDE [Concomitant]
     Route: 065
  6. VERAPAMIL [Concomitant]
     Route: 065

REACTIONS (9)
  - ACUTE MYOCARDIAL INFARCTION [None]
  - BLOOD CHOLESTEROL INCREASED [None]
  - CARDIAC DISORDER [None]
  - CARDIAC FAILURE CONGESTIVE [None]
  - CORONARY ARTERY DISEASE [None]
  - DEPRESSION [None]
  - DYSPNOEA [None]
  - FATIGUE [None]
  - PAIN IN JAW [None]
